FAERS Safety Report 15432898 (Version 1)
Quarter: 2018Q4

REPORT INFORMATION
  Report Type: Report from Study
  Country: ES (occurrence: ES)
  Receive Date: 20180927
  Receipt Date: 20180927
  Transmission Date: 20190204
  Serious: Yes (Hospitalization)
  Sender: FDA-Public Use
  Company Number: ES-TEVA-2018-ES-958846

PATIENT
  Age: 85 Year
  Sex: Male

DRUGS (3)
  1. GABAPENTINA (2641A) [Suspect]
     Active Substance: GABAPENTIN
     Indication: TRIGEMINAL NEURALGIA
     Dosage: 300 MILLIGRAM DAILY;
     Route: 048
     Dates: start: 20160716, end: 20160718
  2. PREGABALINA (3897A) [Interacting]
     Active Substance: PREGABALIN
     Indication: TRIGEMINAL NEURALGIA
     Dosage: 75 MG 8 HOURLY
     Route: 048
     Dates: start: 2015, end: 20160718
  3. MORFINA (1982A) [Interacting]
     Active Substance: MORPHINE
     Indication: DYSPNOEA
     Dosage: 3 MILLIGRAM DAILY;
     Route: 058
     Dates: start: 20160716, end: 20160718

REACTIONS (2)
  - Encephalopathy [Recovered/Resolved]
  - Drug interaction [Unknown]

NARRATIVE: CASE EVENT DATE: 20160716
